FAERS Safety Report 8555480-7 (Version None)
Quarter: 2012Q3

REPORT INFORMATION
  Report Type: 
  Country: None (occurrence: None)
  Receive Date: 20120731
  Receipt Date: 20110819
  Transmission Date: 20120928
  Serious: No
  Sender: FDA-Public Use
  Company Number: US-ASTRAZENECA-2011SE11235

PATIENT
  Age: 58 Year
  Sex: Male
  Weight: 74.8 kg

DRUGS (7)
  1. SEROQUEL [Suspect]
     Route: 048
  2. KLONOPIN [Concomitant]
     Indication: BIPOLAR DISORDER
  3. SEROQUEL [Suspect]
     Route: 048
  4. VICADIN [Concomitant]
     Indication: ARTHRALGIA
  5. LISINOPRIL AND HYDROCHLOROTHIAZIDE [Concomitant]
     Indication: BLOOD PRESSURE ABNORMAL
  6. SEROQUEL [Suspect]
     Route: 048
  7. SEROQUEL [Suspect]
     Indication: BIPOLAR DISORDER
     Route: 048

REACTIONS (8)
  - RASH [None]
  - DRUG INEFFECTIVE [None]
  - FEELING ABNORMAL [None]
  - INSOMNIA [None]
  - HYPERSENSITIVITY [None]
  - SOMNOLENCE [None]
  - PRURITUS [None]
  - PIGMENTATION DISORDER [None]
